FAERS Safety Report 6273058-5 (Version None)
Quarter: 2009Q3

REPORT INFORMATION
  Report Type: 
  Country: None (occurrence: None)
  Receive Date: 20090715
  Receipt Date: 20090715
  Transmission Date: 20100115
  Serious: Yes (Other)
  Sender: FDA-Public Use
  Company Number: None

PATIENT
  Age: 51 Year
  Sex: Male
  Weight: 0.9072 kg

DRUGS (2)
  1. ZICAM COLD MEDS (NASAL GEL) [Suspect]
     Indication: NASOPHARYNGITIS
     Dosage: AS NEEDED
  2. ZICAM ALLERGY MEDS (NASAL GEL) [Suspect]
     Indication: MULTIPLE ALLERGIES
     Dosage: AS NEEDED

REACTIONS (2)
  - AGEUSIA [None]
  - ANOSMIA [None]
